FAERS Safety Report 5567832-8 (Version None)
Quarter: 2007Q4

REPORT INFORMATION
  Report Type: 
  Country: None (occurrence: None)
  Receive Date: 20071211
  Receipt Date: 20071211
  Transmission Date: 20080405
  Serious: Yes (Hospitalization)
  Sender: FDA-Public Use
  Company Number: None

PATIENT
  Age: 64 Year
  Sex: Male
  Weight: 91 kg

DRUGS (4)
  1. ESCITALOPRAM [Suspect]
     Indication: MAJOR DEPRESSION
     Dosage: 10 MG OD - ORAL
     Route: 048
     Dates: start: 20070307, end: 20070503
  2. GLIMEPIRIDE [Concomitant]
  3. QUINAPRIL HCL [Concomitant]
  4. CARVEDILOL [Concomitant]

REACTIONS (2)
  - ABNORMAL BEHAVIOUR [None]
  - MAJOR DEPRESSION [None]
